FAERS Safety Report 9293642 (Version 5)
Quarter: 2017Q2

REPORT INFORMATION
  Report Type: Spontaneous
  Country: US (occurrence: US)
  Receive Date: 20130516
  Receipt Date: 20170524
  Transmission Date: 20170830
  Serious: Yes (Hospitalization, Other)
  Sender: FDA-Public Use
  Company Number: US-009507513-1305USA007042

PATIENT
  Sex: Female
  Weight: 67.12 kg

DRUGS (2)
  1. FOSAMAX [Suspect]
     Active Substance: ALENDRONATE SODIUM
     Indication: OSTEOPOROSIS
     Dosage: 35 MG, UNKNOWN
     Route: 048
     Dates: start: 20040118, end: 20071111
  2. ALENDRONATE SODIUM. [Suspect]
     Active Substance: ALENDRONATE SODIUM
     Indication: OSTEOPOROSIS
     Dosage: 35 MG, UNKNOWN
     Route: 048
     Dates: start: 20071211, end: 20100404

REACTIONS (18)
  - Pain in extremity [Unknown]
  - Femoral neck fracture [Unknown]
  - Ventricular extrasystoles [Unknown]
  - Osteoarthritis [Unknown]
  - Neoplasm malignant [Unknown]
  - Hysterectomy [Unknown]
  - Rhabdomyolysis [Unknown]
  - Troponin increased [Recovering/Resolving]
  - Hyperlipidaemia [Unknown]
  - Hip fracture [Unknown]
  - Hypertension [Unknown]
  - Osteoarthritis [Unknown]
  - Ecchymosis [Unknown]
  - Fall [Unknown]
  - Tendonitis [Unknown]
  - Haemorrhagic anaemia [Unknown]
  - Dehydration [Unknown]
  - Bursitis [Unknown]

NARRATIVE: CASE EVENT DATE: 20100518
